FAERS Safety Report 8216216-2 (Version None)
Quarter: 2012Q1

REPORT INFORMATION
  Report Type: 
  Country: None (occurrence: None)
  Receive Date: 20120316
  Receipt Date: 20120309
  Transmission Date: 20120608
  Serious: Yes (Other)
  Sender: FDA-Public Use
  Company Number: RU-GLAXOSMITHKLINE-B0787489A

PATIENT
  Age: 67 Year
  Sex: Female

DRUGS (3)
  1. ARIXTRA [Suspect]
     Indication: THROMBOSIS PROPHYLAXIS
     Dosage: 2.5ML PER DAY
     Route: 058
     Dates: start: 20120101
  2. GEMCITABINE [Concomitant]
     Indication: CHEMOTHERAPY
     Dates: start: 20120215
  3. WARFARIN SODIUM [Concomitant]

REACTIONS (3)
  - LEUKOPENIA [None]
  - ANAEMIA [None]
  - THROMBOCYTOPENIA [None]
